FAERS Safety Report 8085518-5 (Version None)
Quarter: 2012Q1

REPORT INFORMATION
  Report Type: 
  Country: None (occurrence: None)
  Receive Date: 20120128
  Receipt Date: 20110405
  Transmission Date: 20120608
  Serious: No
  Sender: FDA-Public Use
  Company Number: US-ABBOTT-11P-163-0710969-00

PATIENT
  Age: 19 Year
  Sex: Male

DRUGS (2)
  1. NORCO [Concomitant]
     Indication: PAIN
     Dosage: 5/325
  2. HUMIRA [Suspect]
     Indication: CROHN'S DISEASE
     Dates: start: 20101101

REACTIONS (7)
  - WEIGHT DECREASED [None]
  - NASAL CONGESTION [None]
  - PNEUMONIA [None]
  - OROPHARYNGEAL PAIN [None]
  - RHINORRHOEA [None]
  - COUGH [None]
  - FATIGUE [None]
